FAERS Safety Report 7827580-8 (Version None)
Quarter: 2011Q4

REPORT INFORMATION
  Report Type: 
  Country: None (occurrence: None)
  Receive Date: 20111020
  Receipt Date: 20111014
  Transmission Date: 20120403
  Serious: Yes (Other)
  Sender: FDA-Public Use
  Company Number: PHHY2011AU81431

PATIENT

DRUGS (5)
  1. QUETIAPINE [Concomitant]
  2. CLOZARIL [Suspect]
     Dosage: 500 MG, DAILY
     Route: 048
  3. ISONIAZID [Suspect]
  4. CLOZARIL [Suspect]
     Route: 048
  5. RIFAMPIN [Suspect]

REACTIONS (6)
  - NEUROLEPTIC MALIGNANT SYNDROME [None]
  - CATATONIA [None]
  - TUBERCULOSIS [None]
  - SCHIZOPHRENIA [None]
  - LEUKOPENIA [None]
  - NEUTROPENIA [None]
